FAERS Safety Report 7328303-1 (Version None)
Quarter: 2011Q1

REPORT INFORMATION
  Report Type: 
  Country: None (occurrence: None)
  Receive Date: 20110303
  Receipt Date: 20110222
  Transmission Date: 20110831
  Serious: Yes (Life-Threatening, Other)
  Sender: FDA-Public Use
  Company Number: JP-MPIJNJ-2011-00803

PATIENT

DRUGS (15)
  1. ZYLORIC                            /00003301/ [Concomitant]
     Route: 048
  2. DUROTEP [Concomitant]
     Route: 062
  3. VALTREX [Concomitant]
     Route: 048
  4. PURSENNID                          /00142207/ [Concomitant]
     Route: 048
  5. NOVAMIN                            /00013301/ [Concomitant]
     Route: 048
  6. GLUCONSAN K [Concomitant]
     Route: 048
  7. LORAZEPAM [Concomitant]
     Route: 048
  8. VELCADE [Suspect]
     Indication: MULTIPLE MYELOMA
     Dosage: 1.4 MG, UNK
     Route: 042
     Dates: start: 20100522, end: 20100522
  9. ITRIZOLE [Concomitant]
     Route: 048
  10. DOXORUBICIN HCL [Concomitant]
     Indication: MULTIPLE MYELOMA
     Route: 042
  11. BACTRIM [Concomitant]
     Route: 048
  12. MAGMITT [Concomitant]
     Route: 048
  13. ZOMETA [Concomitant]
     Route: 042
  14. DEXART [Concomitant]
     Indication: MULTIPLE MYELOMA
  15. TAKEPRON [Concomitant]
     Route: 048

REACTIONS (4)
  - MYOCARDITIS [None]
  - ASPARTATE AMINOTRANSFERASE INCREASED [None]
  - PLEURAL EFFUSION [None]
  - ALANINE AMINOTRANSFERASE INCREASED [None]
